FAERS Safety Report 22542015 (Version 2)
Quarter: 2024Q1

REPORT INFORMATION
  Report Type: Spontaneous
  Country: CA (occurrence: CA)
  Receive Date: 20230609
  Receipt Date: 20240216
  Transmission Date: 20240409
  Serious: Yes (Death, Other)
  Sender: FDA-Public Use
  Company Number: CA-HLS-202301452

PATIENT
  Age: 74 Year
  Sex: Male

DRUGS (1)
  1. CLOZAPINE [Suspect]
     Active Substance: CLOZAPINE
     Indication: Product used for unknown indication
     Dosage: TABLETS DOSAGE FORM
     Route: 065

REACTIONS (5)
  - COVID-19 [Fatal]
  - Death [Fatal]
  - Dementia [Fatal]
  - Parkinson^s disease [Fatal]
  - Schizoaffective disorder bipolar type [Fatal]
